FAERS Safety Report 5318927-5 (Version None)
Quarter: 2007Q2

REPORT INFORMATION
  Report Type: 
  Country: None (occurrence: None)
  Receive Date: 20070503
  Receipt Date: 20070419
  Transmission Date: 20071010
  Serious: Yes (Hospitalization)
  Sender: FDA-Public Use
  Company Number: 2007SP006895

PATIENT
  Age: 11 Year
  Sex: Female

DRUGS (19)
  1. BETAMETHASONE SODIUM PHOSPHATE [Suspect]
     Indication: LIP SWELLING
     Dosage: 2 MG; ; IV
     Route: 042
     Dates: start: 20070329, end: 20070329
  2. FLUMARIN (FLOMOXEF SODIUM) [Suspect]
     Indication: INFECTION PROPHYLAXIS
     Dosage: SEE IMAGE
     Route: 042
     Dates: start: 20070330, end: 20070401
  3. FLUMARIN (FLOMOXEF SODIUM) [Suspect]
     Indication: ORAL SURGERY
     Dosage: SEE IMAGE
     Route: 042
     Dates: start: 20070330, end: 20070401
  4. FLUMARIN (FLOMOXEF SODIUM) [Suspect]
     Indication: INFECTION PROPHYLAXIS
     Dosage: SEE IMAGE
     Route: 042
     Dates: start: 20070402, end: 20070402
  5. FLUMARIN (FLOMOXEF SODIUM) [Suspect]
     Indication: ORAL SURGERY
     Dosage: SEE IMAGE
     Route: 042
     Dates: start: 20070402, end: 20070402
  6. FLUMARIN (FLOMOXEF SODIUM) [Suspect]
     Indication: INFECTION PROPHYLAXIS
     Dosage: SEE IMAGE
     Route: 042
     Dates: start: 20070329
  7. FLUMARIN (FLOMOXEF SODIUM) [Suspect]
     Indication: ORAL SURGERY
     Dosage: SEE IMAGE
     Route: 042
     Dates: start: 20070329
  8. FLUMARIN (FLOMOXEF SODIUM) [Suspect]
     Indication: INFECTION PROPHYLAXIS
     Dosage: SEE IMAGE
     Route: 042
     Dates: start: 20070403
  9. FLUMARIN (FLOMOXEF SODIUM) [Suspect]
     Indication: ORAL SURGERY
     Dosage: SEE IMAGE
     Route: 042
     Dates: start: 20070403
  10. ADONA [Concomitant]
  11. TRANSAMIN [Concomitant]
  12. DORMICUM [Concomitant]
  13. ATROPINE SULFATE [Concomitant]
  14. BIOFERMIN [Concomitant]
  15. SUCRALFATE [Concomitant]
  16. GASTER [Concomitant]
  17. CALONAL [Concomitant]
  18. VOLTAREN [Concomitant]
  19. LOXONIN [Concomitant]

REACTIONS (10)
  - BONE MARROW FAILURE [None]
  - CHILLS [None]
  - HAEMATOMA [None]
  - LIP HAEMATOMA [None]
  - LIP SWELLING [None]
  - MALAISE [None]
  - PANCYTOPENIA [None]
  - POST PROCEDURAL COMPLICATION [None]
  - PYREXIA [None]
  - SWELLING FACE [None]
